FAERS Safety Report 17195018 (Version 2)
Quarter: 2020Q2

REPORT INFORMATION
  Report Type: Spontaneous
  Country: US (occurrence: US)
  Receive Date: 20191224
  Receipt Date: 20200407
  Transmission Date: 20200713
  Serious: Yes (Hospitalization)
  Sender: FDA-Public Use
  Company Number: US-APOTEX-2019AP026541

PATIENT
  Sex: Female

DRUGS (4)
  1. SPINRAZA [Concomitant]
     Active Substance: NUSINERSEN
     Indication: OSTEOPOROSIS
  2. ZOLEDRONIC ACID INJECTION [Suspect]
     Active Substance: ZOLEDRONIC ACID
     Indication: SPINAL MUSCULAR ATROPHY
     Dosage: 0.025 MG/KG, THE FIRST DOSE WHEN THE ADVERSE EVENT OCCURRED
     Route: 040
  3. ZOLEDRONIC ACID INJECTION [Suspect]
     Active Substance: ZOLEDRONIC ACID
     Indication: OSTEOPOROSIS
     Dosage: 0.05 MG/KG, 0.05 MG/KG/DOSE (MAXIMUM DOSE: 4 MG) EVERY 6 MONTHS
     Route: 040
  4. SPINRAZA [Concomitant]
     Active Substance: NUSINERSEN
     Indication: SPINAL MUSCULAR ATROPHY
     Dosage: UNK (STARTED IN LATE 2017)
     Route: 065
     Dates: start: 2017

REACTIONS (2)
  - Pyrexia [Recovered/Resolved]
  - Acute phase reaction [Recovered/Resolved]
